FAERS Safety Report 21918972 (Version 1)
Quarter: 2023Q1

REPORT INFORMATION
  Report Type: Spontaneous
  Country: GB (occurrence: GB)
  Receive Date: 20230127
  Receipt Date: 20230127
  Transmission Date: 20230418
  Serious: Yes (Other)
  Sender: FDA-Public Use
  Company Number: GB-MHRA-TPP22319881C8085062YC1672942596596

PATIENT
  Age: 17 Year
  Sex: Female
  Weight: 53 kg

DRUGS (6)
  1. AMOXICILLIN [Suspect]
     Active Substance: AMOXICILLIN
     Indication: Ill-defined disorder
     Dosage: 500 MILLIGRAM, ONCE A DAY
     Route: 065
     Dates: start: 20221230, end: 20230104
  2. AMOXICILLIN [Suspect]
     Active Substance: AMOXICILLIN
     Dosage: UNK UNK, ONCE A DAY
     Route: 065
     Dates: start: 20230105
  3. ADAPALENE [Concomitant]
     Active Substance: ADAPALENE
     Indication: Ill-defined disorder
     Dosage: 1 DOSAGE FORM, ONCE A DAY
     Route: 065
     Dates: start: 20210823
  4. AMOXICILLIN [Concomitant]
     Active Substance: AMOXICILLIN
     Indication: Ill-defined disorder
     Dosage: 1 DOSAGE FORM, 3 TIMES A DAY(ONE TO BE TAKEN THREE TIMES A DAY FOR 5 DAY)
     Route: 065
     Dates: start: 20221230, end: 20230104
  5. CLARITHROMYCIN [Concomitant]
     Active Substance: CLARITHROMYCIN
     Indication: Ill-defined disorder
     Dosage: 1 DOSAGE FORM, TWO TIMES A DAY(ONE TABLET TO BE TAKEN TWICE A DAY)
     Route: 065
     Dates: start: 20230105
  6. Tetralysal [Concomitant]
     Indication: Ill-defined disorder
     Dosage: 1 DOSAGE FORM, DAILY(TAKE ONE EACH DAY AS PER SPIRE)
     Route: 065
     Dates: start: 20210823

REACTIONS (4)
  - Dysphagia [Recovered/Resolved]
  - Aphasia [Recovered/Resolved]
  - Peripheral swelling [Recovered/Resolved]
  - Pruritus [Recovered/Resolved]

NARRATIVE: CASE EVENT DATE: 20230105
